FAERS Safety Report 11776929 (Version 1)
Quarter: 2015Q4

REPORT INFORMATION
  Report Type: Spontaneous
  Country: US (occurrence: None)
  Receive Date: 20151124
  Receipt Date: 20151124
  Transmission Date: 20160304
  Serious: Yes (Death, Life-Threatening, Hospitalization)
  Sender: FDA-Public Use
  Company Number: None

PATIENT
  Age: 71 Year
  Sex: Female
  Weight: 54.4 kg

DRUGS (11)
  1. FAMOTIDINE. [Concomitant]
     Active Substance: FAMOTIDINE
  2. METHYLPREDNISOLONE. [Concomitant]
     Active Substance: METHYLPREDNISOLONE
  3. LEVOFLOXACIN. [Concomitant]
     Active Substance: LEVOFLOXACIN
  4. LYRICA [Concomitant]
     Active Substance: PREGABALIN
  5. CREON-12 [Concomitant]
  6. MUCINEX [Concomitant]
     Active Substance: GUAIFENESIN
  7. ALBUTEROL NEBS [Concomitant]
  8. DUONEBS [Concomitant]
  9. SERTRALINE [Concomitant]
     Active Substance: SERTRALINE HYDROCHLORIDE
  10. ELIQUIS [Suspect]
     Active Substance: APIXABAN
     Indication: DEEP VEIN THROMBOSIS
     Route: 048
  11. SINEMET [Concomitant]
     Active Substance: CARBIDOPA\LEVODOPA

REACTIONS (12)
  - Fall [None]
  - Hip fracture [None]
  - Parkinson^s disease [None]
  - Gastrointestinal haemorrhage [None]
  - Urinary tract infection [None]
  - Blood pressure decreased [None]
  - Cardio-respiratory arrest [None]
  - Lethargy [None]
  - Oxygen saturation decreased [None]
  - Respiratory tract infection [None]
  - Abdominal pain [None]
  - Renal impairment [None]

NARRATIVE: CASE EVENT DATE: 20151105
